FAERS Safety Report 15230359 (Version 1)
Quarter: 2018Q3

REPORT INFORMATION
  Report Type: Spontaneous
  Country: US (occurrence: US)
  Receive Date: 20180802
  Receipt Date: 20180802
  Transmission Date: 20181010
  Serious: No
  Sender: FDA-Public Use
  Company Number: US-TEVA-2018-US-934855

PATIENT
  Sex: Male

DRUGS (1)
  1. CLONAZEPAM. [Suspect]
     Active Substance: CLONAZEPAM
     Dates: start: 201806

REACTIONS (8)
  - Decreased appetite [Unknown]
  - Drug effect incomplete [Unknown]
  - Somnolence [Unknown]
  - Withdrawal syndrome [Unknown]
  - Sleep disorder [Unknown]
  - Headache [Unknown]
  - Product substitution issue [Unknown]
  - Asthenia [Unknown]

NARRATIVE: CASE EVENT DATE: 201806
